FAERS Safety Report 18320540 (Version 2)
Quarter: 2020Q4

REPORT INFORMATION
  Report Type: Spontaneous
  Country: BE (occurrence: BE)
  Receive Date: 20200928
  Receipt Date: 20201008
  Transmission Date: 20210113
  Serious: Yes (Other)
  Sender: FDA-Public Use
  Company Number: BE-BAXTER-2020BAX019534

PATIENT
  Age: 63 Year
  Sex: Female

DRUGS (6)
  1. MITOXANTRONE [Concomitant]
     Active Substance: MITOXANTRONE HYDROCHLORIDE
     Indication: MALIGNANT MELANOMA
     Dosage: UNK, CYCLIC, CYCLICAL
     Route: 065
  2. VINCRISTINE SULFATE. [Concomitant]
     Active Substance: VINCRISTINE SULFATE
     Indication: MALIGNANT MELANOMA
     Dosage: UNK, CYCLIC, CYCLICAL OF CHOP REGIMEN
     Route: 065
  3. RITUXIMAB. [Concomitant]
     Active Substance: RITUXIMAB
     Indication: MALIGNANT MELANOMA
     Dosage: UNK, CYCLIC, CYCLICAL
     Route: 065
  4. PREDNISONE. [Concomitant]
     Active Substance: PREDNISONE
     Indication: MALIGNANT MELANOMA
     Dosage: UNK, CYCLIC, CYCLICAL OF CHOP REGIMEN
     Route: 065
  5. DOXIL [Suspect]
     Active Substance: DOXORUBICIN HYDROCHLORIDE
     Indication: MALIGNANT MELANOMA
     Dosage: UNK, CYCLIC, CYCLICAL
     Route: 065
  6. CYCLOPHOSPHAMIDE. [Concomitant]
     Active Substance: CYCLOPHOSPHAMIDE
     Indication: MALIGNANT MELANOMA
     Dosage: UNK, CYCLIC, CYCLICAL OF CHOP REGIMEN
     Route: 065

REACTIONS (3)
  - Acute pulmonary oedema [Unknown]
  - Neoplasm progression [Unknown]
  - Ejection fraction decreased [Unknown]
